FAERS Safety Report 8386473-0 (Version None)
Quarter: 2012Q2

REPORT INFORMATION
  Report Type: 
  Country: None (occurrence: None)
  Receive Date: 20120525
  Receipt Date: 20120518
  Transmission Date: 20120825
  Serious: Yes (Other)
  Sender: FDA-Public Use
  Company Number: US-UCBSA-057051

PATIENT
  Age: 47 Year
  Sex: Female

DRUGS (6)
  1. CYMBALTA [Concomitant]
     Indication: MYALGIA
     Route: 048
     Dates: start: 20100101
  2. METHOTREXATE [Concomitant]
     Indication: RHEUMATOID ARTHRITIS
     Dosage: 5 TABLETS PER WEEK
     Route: 048
     Dates: start: 20100101
  3. CIMZIA [Suspect]
     Indication: RHEUMATOID ARTHRITIS
     Route: 058
     Dates: start: 20110218, end: 20120501
  4. NEURONTIN [Concomitant]
     Indication: MYALGIA
     Route: 048
     Dates: start: 20100101
  5. NEURONTIN [Concomitant]
     Indication: MENOPAUSE
     Route: 048
     Dates: start: 20100101
  6. SOMA [Concomitant]
     Indication: MUSCLE SPASMS
     Route: 048
     Dates: start: 20100101

REACTIONS (1)
  - RASH GENERALISED [None]
